FAERS Safety Report 13110279 (Version 1)
Quarter: 2017Q1

REPORT INFORMATION
  Report Type: Spontaneous
  Country: US (occurrence: US)
  Receive Date: 20170112
  Receipt Date: 20170112
  Transmission Date: 20170428
  Serious: No
  Sender: FDA-Public Use
  Company Number: US-ROCHE-GNE099141

PATIENT

DRUGS (3)
  1. HEPARIN [Suspect]
     Active Substance: HEPARIN SODIUM
     Indication: GRAFT THROMBOSIS
     Dosage: DOSE=5000 UNIT
     Route: 040
  2. HEPARIN [Concomitant]
     Active Substance: HEPARIN SODIUM
     Dosage: DOSE=5000 UNIT
     Route: 050
  3. ACTIVASE [Suspect]
     Active Substance: ALTEPLASE
     Indication: GRAFT THROMBOSIS
     Route: 050

REACTIONS (1)
  - Puncture site haemorrhage [Recovered/Resolved]
